FAERS Safety Report 7608239-9 (Version None)
Quarter: 2011Q3

REPORT INFORMATION
  Report Type: 
  Country: None (occurrence: None)
  Receive Date: 20110714
  Receipt Date: 20110629
  Transmission Date: 20111222
  Serious: No
  Sender: FDA-Public Use
  Company Number: US-B.I. PHARMACEUTICALS,INC./RIDGEFIELD-2011-BP-16672BP

PATIENT
  Sex: Female

DRUGS (6)
  1. PRADAXA [Suspect]
     Indication: ATRIAL FIBRILLATION
     Dosage: 300 MG
     Route: 048
     Dates: start: 20110312
  2. METOPROLOL [Concomitant]
     Indication: HYPERTENSION
     Dosage: 100 MG
     Route: 048
  3. CARTIA XT [Concomitant]
     Indication: HYPERTENSION
     Dosage: 180 MG
     Route: 048
  4. PRILOSEC [Concomitant]
     Dosage: 20 MG
     Route: 048
  5. SALSALATE [Concomitant]
     Indication: ARTHRITIS
     Dosage: 1500 MG
     Route: 048
  6. CALCIUM CARBONATE [Concomitant]
     Indication: SUPPLEMENTATION THERAPY
     Route: 048

REACTIONS (2)
  - FREQUENT BOWEL MOVEMENTS [None]
  - ABDOMINAL DISCOMFORT [None]
